FAERS Safety Report 6742813-7 (Version None)
Quarter: 2010Q2

REPORT INFORMATION
  Report Type: 
  Country: None (occurrence: None)
  Receive Date: 20100525
  Receipt Date: 20100511
  Transmission Date: 20101027
  Serious: Yes (Hospitalization, Other)
  Sender: FDA-Public Use
  Company Number: 001846

PATIENT
  Sex: Male
  Weight: 68.9467 kg

DRUGS (9)
  1. ROTIGOTINE [Suspect]
     Indication: PARKINSON'S DISEASE
     Dosage: (2 MG QD TRANSDERMAL)
     Route: 062
     Dates: start: 20090917
  2. SINEMET CR [Concomitant]
  3. SINEMET [Concomitant]
  4. ARICEPT [Concomitant]
  5. AZILECT [Concomitant]
  6. ZOCOR [Concomitant]
  7. ASPIRIN [Concomitant]
  8. MIDODRINE HYDROCHLORIDE [Concomitant]
  9. REQUIP [Concomitant]

REACTIONS (1)
  - PERIRECTAL ABSCESS [None]
